FAERS Safety Report 23254299 (Version 1)
Quarter: 2023Q4

REPORT INFORMATION
  Report Type: Spontaneous
  Country: CN (occurrence: CN)
  Receive Date: 20231202
  Receipt Date: 20231202
  Transmission Date: 20240109
  Serious: Yes (Other)
  Sender: FDA-Public Use
  Company Number: CN-AUROBINDO-AUR-APL-2023-075673

PATIENT
  Age: 84 Year
  Sex: Female

DRUGS (13)
  1. PANTOPRAZOLE SODIUM [Suspect]
     Active Substance: PANTOPRAZOLE SODIUM
     Indication: Prophylaxis
     Dosage: 40 MILLIGRAM, QM
     Route: 048
     Dates: start: 20230305
  2. PANTOPRAZOLE SODIUM [Suspect]
     Active Substance: PANTOPRAZOLE SODIUM
     Dosage: 40 MILLIGRAM
     Route: 048
     Dates: start: 202306
  3. RIFAPENTINE [Concomitant]
     Active Substance: RIFAPENTINE
     Indication: Tuberculous pleurisy
     Dosage: 0.3 GRAM
     Route: 065
     Dates: start: 202306
  4. RIFAPENTINE [Concomitant]
     Active Substance: RIFAPENTINE
     Indication: Prophylaxis
     Dosage: 0.3 GRAM, 3 TIMES A DAY
     Route: 065
     Dates: start: 20231002, end: 20231029
  5. ETHAMBUTOL [Concomitant]
     Active Substance: ETHAMBUTOL HYDROCHLORIDE
     Indication: Prophylaxis
     Dosage: 0.5 GRAM,
     Route: 048
     Dates: start: 20230314
  6. ETHAMBUTOL [Concomitant]
     Active Substance: ETHAMBUTOL HYDROCHLORIDE
     Dosage: 0.5 GRAM,
     Route: 048
     Dates: start: 20230315, end: 20230808
  7. ETHAMBUTOL [Concomitant]
     Active Substance: ETHAMBUTOL HYDROCHLORIDE
     Dosage: 0.5 GRAM,
     Route: 048
     Dates: start: 202306
  8. ETHAMBUTOL [Concomitant]
     Active Substance: ETHAMBUTOL HYDROCHLORIDE
     Dosage: 0.5 GRAM, QM
     Route: 048
     Dates: start: 20231002
  9. SILYBIN [Concomitant]
     Indication: Prophylaxis
     Dosage: 70 MILLIGRAM
     Route: 048
     Dates: start: 202306
  10. SILYBIN [Concomitant]
     Dosage: 70 MILLIGRAM, 3 TIMES A DAY
     Route: 048
     Dates: start: 20231002
  11. ISONIAZID [Concomitant]
     Active Substance: ISONIAZID
     Indication: Prophylaxis
     Dosage: 0.3 GRAM
     Route: 065
     Dates: start: 202306, end: 20231029
  12. ALCOHOL [Concomitant]
     Active Substance: ALCOHOL
     Indication: Prophylaxis
     Dosage: 50 MILLIGRAM, 3 TIMES A DAY
     Route: 048
     Dates: start: 20231020
  13. ALCOHOL [Concomitant]
     Active Substance: ALCOHOL
     Dosage: 50 MILLIGRAM, 3 TIMES A DAY
     Route: 048
     Dates: start: 20231029

REACTIONS (1)
  - Cholestatic liver injury [Recovering/Resolving]

NARRATIVE: CASE EVENT DATE: 20231020
